FAERS Safety Report 7349511-X (Version None)
Quarter: 2011Q1

REPORT INFORMATION
  Report Type: 
  Country: None (occurrence: None)
  Receive Date: 20110314
  Receipt Date: 20110302
  Transmission Date: 20110831
  Serious: Yes (Other)
  Sender: FDA-Public Use
  Company Number: BR-SANOFI-AVENTIS-2011SA013150

PATIENT
  Sex: Male
  Weight: 88 kg

DRUGS (6)
  1. SOMALGIN [Concomitant]
     Indication: ANTICOAGULANT THERAPY
     Route: 048
     Dates: start: 20010101
  2. NOVORAPID [Concomitant]
     Indication: TYPE 2 DIABETES MELLITUS
     Dosage: 4 IU WHEN  GLYCEMIA  OVER 150 MG/DL; 8 IU WHEN UNTIL 200 MG/DL; 12 IU  OVER 200 MG/DL)
     Route: 058
     Dates: start: 20100101
  3. PURAN T4 [Concomitant]
     Indication: THYROID DISORDER
     Route: 048
     Dates: start: 20010101
  4. ZETIA [Concomitant]
     Indication: BLOOD PRESSURE
     Route: 048
  5. LANTUS [Suspect]
     Indication: TYPE 2 DIABETES MELLITUS
     Route: 058
  6. METFORMIN [Concomitant]
     Indication: TYPE 2 DIABETES MELLITUS
     Route: 048

REACTIONS (3)
  - DEAFNESS [None]
  - BLOOD GLUCOSE INCREASED [None]
  - HYPOACUSIS [None]
